FAERS Safety Report 16868523 (Version 1)
Quarter: 2019Q3

REPORT INFORMATION
  Report Type: Report from Study
  Country: US (occurrence: US)
  Receive Date: 20190930
  Receipt Date: 20190930
  Transmission Date: 20191005
  Serious: Yes (Life-Threatening, Other)
  Sender: FDA-Public Use
  Company Number: US-RECRO GAINESVILLE LLC-REPH-2019-000207

PATIENT
  Age: 50 Year
  Sex: Female

DRUGS (2)
  1. VERAPAMIL HYDROCHLORIDE SUSTAINED RELEASE [Suspect]
     Active Substance: VERAPAMIL HYDROCHLORIDE
     Dosage: 55 MILLIGRAM/KILOGRAM (MG/KG), ONE TIME DOSE
     Route: 048
  2. HYDROCHLOROTHIAZIDE. [Suspect]
     Active Substance: HYDROCHLOROTHIAZIDE
     Dosage: UNK
     Route: 048

REACTIONS (15)
  - Confusional state [Recovered/Resolved]
  - Hypotension [Recovered/Resolved]
  - Hypophosphataemia [Recovered/Resolved]
  - Nausea [Recovered/Resolved]
  - Atrioventricular block complete [Recovered/Resolved]
  - Acidosis [Recovered/Resolved]
  - Hypomagnesaemia [Recovered/Resolved]
  - Endotracheal intubation complication [Recovered/Resolved]
  - Intentional overdose [Recovered/Resolved]
  - Lethargy [Recovered/Resolved]
  - Laryngeal granuloma [Recovered/Resolved]
  - Ataxia [Recovered/Resolved]
  - Hypercalcaemia [Recovered/Resolved]
  - Bradycardia [Recovered/Resolved]
  - Blood pressure immeasurable [Recovered/Resolved]
